FAERS Safety Report 13967940 (Version 1)
Quarter: 2017Q3

REPORT INFORMATION
  Report Type: Spontaneous
  Country: MX (occurrence: MX)
  Receive Date: 20170914
  Receipt Date: 20170914
  Transmission Date: 20171128
  Serious: Yes (Hospitalization)
  Sender: FDA-Public Use
  Company Number: MX-HORIZON-ACT-0259-2017

PATIENT
  Age: 13 Year
  Sex: Male
  Weight: 33 kg

DRUGS (2)
  1. IMUKIN [Suspect]
     Active Substance: INTERFERON GAMMA
     Indication: CHRONIC GRANULOMATOUS DISEASE
     Dosage: 50 MG TIW
     Route: 058
     Dates: start: 20110125
  2. ITRACONAZOLE. [Concomitant]
     Active Substance: ITRACONAZOLE
     Indication: PROPHYLAXIS
     Route: 048

REACTIONS (2)
  - Lymphadenopathy [Recovered/Resolved]
  - Granuloma [Recovered/Resolved]

NARRATIVE: CASE EVENT DATE: 20170707
